FAERS Safety Report 9556370 (Version 1)
Quarter: 2013Q3

REPORT INFORMATION
  Report Type: Spontaneous
  Country: GB (occurrence: None)
  Receive Date: 20130924
  Receipt Date: 20130924
  Transmission Date: 20140515
  Serious: Yes (Other)
  Sender: FDA-Public Use
  Company Number: GER/UKI/13/0034570

PATIENT
  Age: 78 Year
  Sex: Female

DRUGS (5)
  1. SERTRALINE (SERTRALINE) [Suspect]
     Indication: DEPRESSION
     Dosage: 1 IN 1 D
     Route: 048
     Dates: start: 201308, end: 20130827
  2. ADCAL-D3 (LEKOVIT CA) [Concomitant]
  3. BACLOFEN (BACLOFEN) [Concomitant]
  4. SIMVASTATIN (SIMVASTATIN) [Concomitant]
  5. ZOPICLONE (ZOPICLONE) [Concomitant]

REACTIONS (2)
  - Serotonin syndrome [None]
  - Fall [None]
